FAERS Safety Report 5402056-6 (Version None)
Quarter: 2007Q3

REPORT INFORMATION
  Report Type: 
  Country: None (occurrence: None)
  Receive Date: 20070727
  Receipt Date: 20070717
  Transmission Date: 20080115
  Serious: Yes (Other)
  Sender: FDA-Public Use
  Company Number: 39107

PATIENT
  Age: 48 Year
  Sex: Female
  Weight: 72.5755 kg

DRUGS (14)
  1. METHOTREXATE INJ. USP 50MG/2ML - BEDFORD LABS, INC. [Suspect]
     Indication: POLYCHONDRITIS
     Dosage: 25 MG/ONCE WEEKLY/SUBCUTANE
     Route: 058
     Dates: start: 20070524
  2. PROTONIX [Concomitant]
  3. CYCLOBENZAPRINE HCL [Concomitant]
  4. VALIUM [Concomitant]
  5. NORCO [Concomitant]
  6. OXYCODONE HCL [Concomitant]
  7. VESICARE [Concomitant]
  8. REGLAN [Concomitant]
  9. LEUCOVORIN CALCIUM [Concomitant]
  10. AMBIEN [Concomitant]
  11. ESTRADIOL [Concomitant]
  12. LEXAPRO [Concomitant]
  13. BACTRIM [Concomitant]
  14. PHENERGAN HCL [Concomitant]

REACTIONS (4)
  - ALOPECIA [None]
  - DRUG INEFFECTIVE [None]
  - MEDICATION ERROR [None]
  - NAUSEA [None]
